FAERS Safety Report 8420827-9 (Version None)
Quarter: 2012Q2

REPORT INFORMATION
  Report Type: 
  Country: None (occurrence: None)
  Receive Date: 20120530
  Receipt Date: 20120514
  Transmission Date: 20120825
  Serious: Yes (Death)
  Sender: FDA-Public Use
  Company Number: TCI2012A02470

PATIENT
  Age: 71 Year
  Sex: Male

DRUGS (1)
  1. LANSOPRAZOLE [Suspect]
     Dates: start: 20100601, end: 20100701

REACTIONS (2)
  - AGRANULOCYTOSIS [None]
  - SEPSIS [None]
